FAERS Safety Report 17987603 (Version 1)
Quarter: 2020Q3

REPORT INFORMATION
  Report Type: Spontaneous
  Country: US (occurrence: US)
  Receive Date: 20200706
  Receipt Date: 20200706
  Transmission Date: 20201103
  Serious: No
  Sender: FDA-Public Use
  Company Number: None

PATIENT
  Sex: Female

DRUGS (1)
  1. GLASSIA [Suspect]
     Active Substance: .ALPHA.1-PROTEINASE INHIBITOR HUMAN
     Indication: ALPHA-1 ANTITRYPSIN DEFICIENCY
     Dosage: ?          OTHER DOSE:60MG/KG+/?10%;?
     Route: 042
     Dates: start: 20190108

REACTIONS (3)
  - Pruritus [None]
  - Infusion related reaction [None]
  - Dyspnoea [None]
